FAERS Safety Report 8110992-5 (Version None)
Quarter: 2012Q1

REPORT INFORMATION
  Report Type: 
  Country: None (occurrence: None)
  Receive Date: 20120203
  Receipt Date: 20110128
  Transmission Date: 20120608
  Serious: No
  Sender: FDA-Public Use
  Company Number: US-GLAXOSMITHKLINE-A0911352A

PATIENT
  Sex: Female

DRUGS (2)
  1. LAMOTRIGINE [Suspect]
     Indication: PRODUCT USED FOR UNKNOWN INDICATION
     Route: 048
  2. UNSPECIFIED MEDICATION [Concomitant]

REACTIONS (2)
  - VOMITING [None]
  - DYSPHAGIA [None]
